FAERS Safety Report 7490616-0 (Version None)
Quarter: 2011Q2

REPORT INFORMATION
  Report Type: 
  Country: None (occurrence: None)
  Receive Date: 20110519
  Receipt Date: 20110512
  Transmission Date: 20111010
  Serious: Yes (Hospitalization, Other)
  Sender: FDA-Public Use
  Company Number: GB-BRISTOL-MYERS SQUIBB COMPANY-15705775

PATIENT
  Age: 64 Year
  Sex: Female

DRUGS (1)
  1. IPILIMUMAB [Suspect]
     Indication: MALIGNANT MELANOMA
     Route: 042
     Dates: start: 20110202, end: 20110407

REACTIONS (6)
  - HEPATITIS [None]
  - CONJUNCTIVITIS ALLERGIC [None]
  - OBSTRUCTION [None]
  - PYREXIA [None]
  - COLITIS [None]
  - DIARRHOEA [None]
